FAERS Safety Report 14201274 (Version 2)
Quarter: 2018Q1

REPORT INFORMATION
  Report Type: Spontaneous
  Country: US (occurrence: US)
  Receive Date: 20171117
  Receipt Date: 20180110
  Transmission Date: 20180508
  Serious: No
  Sender: FDA-Public Use
  Company Number: US-PFIZER INC-2017488227

PATIENT
  Age: 40 Year
  Sex: Male
  Weight: 72.56 kg

DRUGS (2)
  1. CRESTOR [Concomitant]
     Active Substance: ROSUVASTATIN CALCIUM
     Indication: BLOOD CHOLESTEROL
     Dosage: 5 MG, DAILY (10MG, TAKES HALF A TABLET FOR 5MG PER DAY)
  2. NARDIL [Suspect]
     Active Substance: PHENELZINE SULFATE
     Indication: DEPRESSION
     Dosage: 45 MG, 1X/DAY (IN THE MORNING)
     Route: 048
     Dates: start: 1983

REACTIONS (1)
  - Decreased interest [Recovered/Resolved]

NARRATIVE: CASE EVENT DATE: 1989
